FAERS Safety Report 16253959 (Version 1)
Quarter: 2019Q2

REPORT INFORMATION
  Report Type: Spontaneous
  Country: PL (occurrence: PL)
  Receive Date: 20190430
  Receipt Date: 20190430
  Transmission Date: 20190711
  Serious: Yes (Life-Threatening)
  Sender: FDA-Public Use
  Company Number: PL-BAXTER-2019BAX008062

PATIENT
  Age: 16 Year
  Sex: Male
  Weight: 105 kg

DRUGS (2)
  1. INJECTIO GLUCOSI 5% ET NATRII CHLORATI 0.9% 2:1 BAXTER [Suspect]
     Active Substance: DEXTROSE\SODIUM CHLORIDE
     Indication: NAUSEA
     Route: 042
     Dates: start: 20161122, end: 20161122
  2. INJECTIO GLUCOSI 5% ET NATRII CHLORATI 0.9% 2:1 BAXTER [Suspect]
     Active Substance: DEXTROSE\SODIUM CHLORIDE
     Indication: VOMITING

REACTIONS (5)
  - Chills [Recovering/Resolving]
  - Tremor [Recovering/Resolving]
  - Cough [Recovering/Resolving]
  - Headache [Recovering/Resolving]
  - Wheezing [Recovering/Resolving]

NARRATIVE: CASE EVENT DATE: 20161122
